FAERS Safety Report 5344236-4 (Version None)
Quarter: 2007Q2

REPORT INFORMATION
  Report Type: 
  Country: None (occurrence: None)
  Receive Date: 20070604
  Receipt Date: 20070521
  Transmission Date: 20071010
  Serious: No
  Sender: FDA-Public Use
  Company Number: US-ELI_LILLY_AND_COMPANY-US200705006444

PATIENT
  Age: 48 Year
  Sex: Female

DRUGS (3)
  1. CYMBALTA [Suspect]
     Indication: FIBROMYALGIA
     Dosage: 120 MG, DAILY (1/D)
     Dates: start: 20050101, end: 20070101
  2. CYMBALTA [Suspect]
     Dosage: UNK MG, UNK
  3. CLONAZEPAM [Concomitant]

REACTIONS (2)
  - HAEMOCHROMATOSIS [None]
  - HEPATIC STEATOSIS [None]
